FAERS Safety Report 16107897 (Version 1)
Quarter: 2019Q1

REPORT INFORMATION
  Report Type: Report from Study
  Country: US (occurrence: US)
  Receive Date: 20190322
  Receipt Date: 20190322
  Transmission Date: 20190418
  Serious: No
  Sender: FDA-Public Use
  Company Number: US-ALLERGAN-1912028US

PATIENT
  Age: 41 Year
  Sex: Female
  Weight: 76.6 kg

DRUGS (7)
  1. ALBUTEROL. [Concomitant]
     Active Substance: ALBUTEROL
     Indication: ASTHMA
     Dosage: 180 ?G, PRN
     Route: 055
     Dates: start: 1987
  2. BLINDED CARIPRAZINE HCL 3MG CAP (TBD) [Suspect]
     Active Substance: CARIPRAZINE HYDROCHLORIDE
     Indication: BIPOLAR DISORDER RELAPSE PROPHYLAXIS
     Dosage: UNK
     Dates: start: 20180915, end: 20190104
  3. BLINDED CARIPRAZINE HCL 3MG CAP (TBD) [Suspect]
     Active Substance: CARIPRAZINE HYDROCHLORIDE
     Dosage: UNK
     Dates: start: 20180914, end: 20180914
  4. BLINDED CARIPRAZINE HCL 1.5MG CAP (TBD) [Suspect]
     Active Substance: CARIPRAZINE HYDROCHLORIDE
     Indication: BIPOLAR DISORDER RELAPSE PROPHYLAXIS
     Dosage: UNK
     Dates: start: 20180915, end: 20190104
  5. BLINDED PLACEBO [Suspect]
     Active Substance: INVESTIGATIONAL PRODUCT
     Indication: BIPOLAR DISORDER RELAPSE PROPHYLAXIS
     Dosage: UNK
     Dates: start: 20180915, end: 20190104
  6. BLINDED CARIPRAZINE HCL 1.5MG CAP (TBD) [Suspect]
     Active Substance: CARIPRAZINE HYDROCHLORIDE
     Dosage: UNK
     Dates: start: 20180914, end: 20180914
  7. BLINDED PLACEBO [Suspect]
     Active Substance: INVESTIGATIONAL PRODUCT
     Dosage: UNK
     Dates: start: 20180914, end: 20180914

REACTIONS (1)
  - Dyschromatopsia [Unknown]

NARRATIVE: CASE EVENT DATE: 20190207
